FAERS Safety Report 9132284 (Version 1)
Quarter: 2013Q1

REPORT INFORMATION
  Report Type: Spontaneous
  Country: FR (occurrence: FR)
  Receive Date: 20130301
  Receipt Date: 20130301
  Transmission Date: 20140127
  Serious: Yes (Other)
  Sender: FDA-Public Use
  Company Number: FR-ELI_LILLY_AND_COMPANY-FR201302010078

PATIENT
  Age: 67 Year
  Sex: Male

DRUGS (12)
  1. BYETTA [Suspect]
     Route: 058
  2. FLUINDIONE [Concomitant]
  3. ACETYLSALICYLATE LYSINE [Concomitant]
  4. HYDROCHLOROTHIAZIDE W/IRBESARTAN [Concomitant]
  5. AMLODIPINE [Concomitant]
  6. FEBUXOSTAT [Concomitant]
  7. ATORVASTATIN [Concomitant]
  8. BISOPROLOL [Concomitant]
  9. ESOMEPRAZOLE [Concomitant]
  10. GLICLAZIDE [Concomitant]
  11. METFORMINE [Concomitant]
  12. ZOLPIDEM [Concomitant]

REACTIONS (1)
  - Cerebral haematoma [Recovered/Resolved with Sequelae]
